FAERS Safety Report 6965103-6 (Version None)
Quarter: 2010Q3

REPORT INFORMATION
  Report Type: 
  Country: None (occurrence: None)
  Receive Date: 20100903
  Receipt Date: 20100824
  Transmission Date: 20110219
  Serious: Yes (Other)
  Sender: FDA-Public Use
  Company Number: IT-JNJFOC-20100808804

PATIENT
  Age: 27 Year
  Sex: Female

DRUGS (10)
  1. ETRAVIRINE [Suspect]
     Indication: HIV INFECTION
     Route: 048
  2. DARUNAVIR [Suspect]
     Indication: HIV INFECTION
     Route: 048
  3. RITONAVIR [Suspect]
     Indication: HIV INFECTION
     Route: 065
  4. CYCLOSPORINE [Interacting]
     Indication: IMMUNOSUPPRESSANT DRUG THERAPY
     Route: 065
  5. MYCOPHENOLATE MOFETIL [Interacting]
     Indication: IMMUNOSUPPRESSANT DRUG THERAPY
     Route: 065
  6. LOPINAVIR [Suspect]
     Indication: HIV INFECTION
     Route: 065
  7. ZIDOVUDINE [Suspect]
     Indication: HIV INFECTION
     Route: 065
  8. ENFUVIRTIDE [Suspect]
     Indication: HIV INFECTION
     Route: 065
  9. LAMIVUDINE [Suspect]
     Indication: HIV INFECTION
     Route: 065
  10. CORTICOSTEROIDS [Suspect]
     Indication: PRODUCT USED FOR UNKNOWN INDICATION
     Route: 065

REACTIONS (8)
  - BONE INFARCTION [None]
  - CATARACT [None]
  - DIABETES MELLITUS [None]
  - DRUG INTERACTION [None]
  - HYPERTENSION [None]
  - HYPOTHYROIDISM [None]
  - OSTEOPOROSIS [None]
  - PNEUMONIA CYTOMEGALOVIRAL [None]
